FAERS Safety Report 15363395 (Version 7)
Quarter: 2020Q2

REPORT INFORMATION
  Report Type: Report from Study
  Country: US (occurrence: US)
  Receive Date: 20180907
  Receipt Date: 20200511
  Transmission Date: 20200713
  Serious: Yes (Death, Life-Threatening, Hospitalization, Other)
  Sender: FDA-Public Use
  Company Number: US-ACTELION-A-NJ2018-176617

PATIENT
  Age: 74 Year
  Sex: Female

DRUGS (30)
  1. CARTIA XT [Concomitant]
     Active Substance: DILTIAZEM HYDROCHLORIDE
     Dosage: UNK
     Dates: start: 201705
  2. CELLCEPT [Concomitant]
     Active Substance: MYCOPHENOLATE MOFETIL\MYCOPHENOLATE MOFETIL HYDROCHLORIDE
     Dosage: UNK
     Dates: start: 201705
  3. DOMEBORO [Concomitant]
     Active Substance: ALUMINUM ACETATE
     Dosage: UNK
     Dates: start: 201705
  4. NEURONTIN [Concomitant]
     Active Substance: GABAPENTIN
     Dosage: UNK
     Dates: start: 201705
  5. ADENOSINE. [Concomitant]
     Active Substance: ADENOSINE
     Dosage: UNK
     Dates: start: 201705
  6. LEVAQUIN [Concomitant]
     Active Substance: LEVOFLOXACIN
  7. ALLEGRA [Concomitant]
     Active Substance: FEXOFENADINE HYDROCHLORIDE
     Dosage: UNK
     Dates: start: 201705
  8. METOPROLOL. [Concomitant]
     Active Substance: METOPROLOL
     Dosage: UNK
     Dates: start: 201705
  9. PLAQUENIL [HYDROXYCHLOROQUINE PHOSPHATE] [Concomitant]
     Active Substance: HYDROXYCHLOROQUINE DIPHOSPHATE
     Dosage: UNK
     Dates: start: 201705
  10. PREDNISONE. [Concomitant]
     Active Substance: PREDNISONE
     Dosage: UNK
     Dates: start: 201705
  11. ADCIRCA [Concomitant]
     Active Substance: TADALAFIL
     Dosage: UNK
     Dates: start: 201705
  12. LOTRIMIN AF ANTIFUNGAL [Concomitant]
     Active Substance: MICONAZOLE NITRATE
     Dosage: UNK
     Dates: start: 201705
  13. OSCAL [CALCITRIOL] [Concomitant]
     Dosage: UNK
     Dates: start: 201705
  14. DIFLUCAN [Concomitant]
     Active Substance: FLUCONAZOLE
     Dosage: UNK
     Dates: start: 201705
  15. KLOR-CON [Concomitant]
     Active Substance: POTASSIUM CHLORIDE
     Dosage: UNK
     Dates: start: 201705
  16. DILTIAZEM. [Concomitant]
     Active Substance: DILTIAZEM
  17. PROBIOTICS NOS [Concomitant]
     Active Substance: PROBIOTICS NOS
  18. ADOXA CK [Concomitant]
     Dosage: UNK
     Dates: start: 201705
  19. VALTREX [Concomitant]
     Active Substance: VALACYCLOVIR HYDROCHLORIDE
     Dosage: UNK
     Dates: start: 201705
  20. PETROLATUM. [Concomitant]
     Active Substance: PETROLATUM
     Dosage: UNK
     Dates: start: 201705
  21. TOBRADEX [Concomitant]
     Active Substance: DEXAMETHASONE\TOBRAMYCIN
  22. OPSUMIT [Suspect]
     Active Substance: MACITENTAN
     Indication: PULMONARY ARTERIAL HYPERTENSION
     Dosage: 10 MG, QD
     Route: 048
     Dates: start: 20160719, end: 20181112
  23. ELIQUIS [Concomitant]
     Active Substance: APIXABAN
  24. ASPIRIN (E.C.) [Concomitant]
     Active Substance: ASPIRIN
     Dosage: UNK
     Dates: start: 201705
  25. MIRALAX [Concomitant]
     Active Substance: POLYETHYLENE GLYCOL 3350
     Dosage: UNK
     Dates: start: 201705
  26. OXYCODONE [Concomitant]
     Active Substance: OXYCODONE
     Dosage: UNK
     Dates: start: 201705
  27. PROAIR [FLUTICASONE PROPIONATE] [Concomitant]
     Active Substance: FLUTICASONE PROPIONATE
     Dosage: UNK
     Dates: start: 201705
  28. SENOKOT [Concomitant]
     Active Substance: SENNOSIDES
     Dosage: UNK
     Dates: start: 201705
  29. STIOLTO RESPIMAT [Concomitant]
     Active Substance: OLODATEROL HYDROCHLORIDE\TIOTROPIUM BROMIDE MONOHYDRATE
  30. CEFTIN [CEFTRIAXONE] [Concomitant]
     Active Substance: CEFTRIAXONE
     Dosage: UNK
     Dates: start: 201705

REACTIONS (17)
  - Tachycardia [Recovered/Resolved]
  - Pulmonary hypertension [Unknown]
  - Pyrexia [Unknown]
  - Sepsis [Recovered/Resolved]
  - Death [Fatal]
  - Electrolyte imbalance [Recovered/Resolved]
  - Diarrhoea [Unknown]
  - Disease progression [Unknown]
  - Urinary incontinence [Recovering/Resolving]
  - Rash [Recovered/Resolved]
  - Supraventricular tachycardia [Recovered/Resolved]
  - Staphylococcal infection [Recovered/Resolved]
  - Constipation [Recovered/Resolved]
  - Gait inability [Unknown]
  - Dehydration [Recovered/Resolved]
  - Urinary tract infection bacterial [Recovered/Resolved]
  - Malaise [Unknown]

NARRATIVE: CASE EVENT DATE: 201705
